FAERS Safety Report 23959526 (Version 1)
Quarter: 2024Q2

REPORT INFORMATION
  Report Type: Spontaneous
  Country: US (occurrence: US)
  Receive Date: 20240611
  Receipt Date: 20240611
  Transmission Date: 20240716
  Serious: Yes (Hospitalization, Other)
  Sender: FDA-Public Use
  Company Number: US-CIPLA LTD.-2024US05740

PATIENT

DRUGS (12)
  1. TENOFOVIR [Suspect]
     Active Substance: TENOFOVIR
     Indication: Acquired immunodeficiency syndrome
     Dosage: UNK
     Route: 065
  2. TENOFOVIR [Suspect]
     Active Substance: TENOFOVIR
     Indication: HIV-associated neurocognitive disorder
  3. TENOFOVIR [Suspect]
     Active Substance: TENOFOVIR
     Indication: Prophylaxis
  4. EMTRICITABINE [Suspect]
     Active Substance: EMTRICITABINE
     Indication: Acquired immunodeficiency syndrome
     Dosage: UNK
     Route: 065
  5. EMTRICITABINE [Suspect]
     Active Substance: EMTRICITABINE
     Indication: HIV-associated neurocognitive disorder
  6. EMTRICITABINE [Suspect]
     Active Substance: EMTRICITABINE
     Indication: Prophylaxis
  7. BICTEGRAVIR [Suspect]
     Active Substance: BICTEGRAVIR
     Indication: Acquired immunodeficiency syndrome
     Dosage: UNK
     Route: 065
  8. BICTEGRAVIR [Suspect]
     Active Substance: BICTEGRAVIR
     Indication: HIV-associated neurocognitive disorder
  9. BICTEGRAVIR [Suspect]
     Active Substance: BICTEGRAVIR
     Indication: Prophylaxis
  10. SULFAMETHOXAZOLE\TRIMETHOPRIM [Suspect]
     Active Substance: SULFAMETHOXAZOLE\TRIMETHOPRIM
     Indication: Acquired immunodeficiency syndrome
     Dosage: UNK
     Route: 065
  11. SULFAMETHOXAZOLE\TRIMETHOPRIM [Suspect]
     Active Substance: SULFAMETHOXAZOLE\TRIMETHOPRIM
     Indication: HIV-associated neurocognitive disorder
  12. SULFAMETHOXAZOLE\TRIMETHOPRIM [Suspect]
     Active Substance: SULFAMETHOXAZOLE\TRIMETHOPRIM
     Indication: Prophylaxis

REACTIONS (4)
  - Small intestinal obstruction [Recovering/Resolving]
  - Gastritis [Recovering/Resolving]
  - Pneumocystis jirovecii infection [Recovering/Resolving]
  - Immune reconstitution inflammatory syndrome [Recovering/Resolving]
